FAERS Safety Report 7953060-5 (Version None)
Quarter: 2011Q4

REPORT INFORMATION
  Report Type: 
  Country: None (occurrence: None)
  Receive Date: 20111201
  Receipt Date: 20111122
  Transmission Date: 20120403
  Serious: Yes (Hospitalization, Other)
  Sender: FDA-Public Use
  Company Number: ZA-B.I. PHARMACEUTICALS,INC./RIDGEFIELD-2011-BP-26732BP

PATIENT
  Sex: Male
  Weight: 2.5 kg

DRUGS (2)
  1. VIRAMUNE [Suspect]
     Indication: PROPHYLAXIS AGAINST HIV INFECTION
     Route: 064
     Dates: start: 20111117, end: 20111117
  2. ZIDOVUDINE [Concomitant]
     Indication: MATERNAL EXPOSURE DURING PREGNANCY
     Route: 064
     Dates: start: 20110916, end: 20111118

REACTIONS (2)
  - TRANSIENT TACHYPNOEA OF THE NEWBORN [None]
  - PREMATURE BABY [None]
